FAERS Safety Report 4367534-X (Version None)
Quarter: 2004Q2

REPORT INFORMATION
  Report Type: 
  Country: None (occurrence: None)
  Receive Date: 20040601
  Receipt Date: 20040525
  Transmission Date: 20050107
  Serious: Yes (Other)
  Sender: FDA-Public Use
  Company Number: CA-ROCHE-369061

PATIENT
  Age: 34 Year
  Sex: Female
  Weight: 58 kg

DRUGS (3)
  1. ACCUTANE [Suspect]
     Dosage: STRENGTH OF CAPSULES REPORTED AS 40 MG.
     Route: 048
     Dates: start: 20030522, end: 20030915
  2. ACCUTANE [Suspect]
     Dosage: STRENGTH OF CAPSULES REPORTED AS 10 MG.
     Route: 048
     Dates: start: 20030522, end: 20030915
  3. ACCUTANE [Suspect]
     Dosage: STRENGTH OF CAPSULES REPORTED AS 40 MG.
     Route: 048
     Dates: start: 20030915, end: 20031015

REACTIONS (4)
  - EAR PAIN [None]
  - HEARING IMPAIRED [None]
  - HYPOACUSIS [None]
  - TINNITUS [None]
